FAERS Safety Report 5847920-9 (Version None)
Quarter: 2008Q3

REPORT INFORMATION
  Report Type: 
  Country: None (occurrence: None)
  Receive Date: 20080818
  Receipt Date: 20080805
  Transmission Date: 20090109
  Serious: Yes (Hospitalization, Disabling, Other)
  Sender: FDA-Public Use
  Company Number: BR-ROCHE-580192

PATIENT
  Sex: Male
  Weight: 82 kg

DRUGS (12)
  1. BONIVA [Suspect]
     Indication: OSTEOPOROSIS
     Route: 048
     Dates: start: 20070401, end: 20071101
  2. SELOZOK [Concomitant]
     Indication: HEART RATE DECREASED
     Route: 048
  3. CAPOTEN [Concomitant]
     Indication: HYPERTENSION
     Dosage: DOSE REGIMEN: 1/4 CAP/DAY
     Route: 048
  4. HYPERICUM PERFORATUM [Concomitant]
     Indication: DEPRESSION
     Route: 048
     Dates: start: 20080501
  5. ANTAK [Concomitant]
     Indication: GASTRIC DISORDER
     Route: 048
  6. PRAVACHOL [Concomitant]
     Indication: BLOOD CHOLESTEROL DECREASED
     Route: 065
  7. PLAVIX [Concomitant]
     Indication: THROMBOLYSIS
     Route: 065
  8. ALDACTONE [Concomitant]
     Route: 065
  9. LEXAPRO [Concomitant]
     Indication: DEPRESSION
  10. LUFTAL [Concomitant]
     Indication: FLATULENCE
     Dosage: DOSE:3X/DAY
  11. TYLENOL [Concomitant]
  12. OMEPRAZOLE [Concomitant]
     Indication: GASTRIC DISORDER

REACTIONS (5)
  - ACUTE MYOCARDIAL INFARCTION [None]
  - BACTERAEMIA [None]
  - FEMUR FRACTURE [None]
  - MONOPLEGIA [None]
  - PNEUMONIA ASPIRATION [None]
